FAERS Safety Report 8042422-6 (Version None)
Quarter: 2012Q1

REPORT INFORMATION
  Report Type: 
  Country: None (occurrence: None)
  Receive Date: 20120112
  Receipt Date: 20111129
  Transmission Date: 20120608
  Serious: No
  Sender: FDA-Public Use
  Company Number: US-BAYER-2011-012207

PATIENT
  Age: 55 Year
  Sex: Male

DRUGS (1)
  1. ULTRAVIST 150 [Suspect]
     Indication: PRODUCT USED FOR UNKNOWN INDICATION
     Dosage: UNK
     Dates: start: 20110127, end: 20110127

REACTIONS (2)
  - NAUSEA [None]
  - VOMITING [None]
